FAERS Safety Report 19581381 (Version 2)
Quarter: 2021Q4

REPORT INFORMATION
  Report Type: Report from Study
  Country: JP (occurrence: JP)
  Receive Date: 20210720
  Receipt Date: 20211014
  Transmission Date: 20220303
  Serious: Yes (Other)
  Sender: FDA-Public Use
  Company Number: JP-MERCK HEALTHCARE KGAA-9232861

PATIENT
  Age: 63 Year
  Sex: Male
  Weight: 52 kg

DRUGS (3)
  1. BAVENCIO [Suspect]
     Active Substance: AVELUMAB
     Indication: Transitional cell carcinoma
     Route: 041
     Dates: start: 20210414
  2. ACETAMINOPHEN [Concomitant]
     Active Substance: ACETAMINOPHEN
     Indication: Premedication
     Route: 048
     Dates: start: 20210414, end: 20210414
  3. DIPHENHYDRAMINE [Concomitant]
     Active Substance: DIPHENHYDRAMINE
     Indication: Premedication
     Route: 048
     Dates: start: 20210414, end: 20210414

REACTIONS (3)
  - Renal impairment [Unknown]
  - Headache [Unknown]
  - Pruritus [Unknown]

NARRATIVE: CASE EVENT DATE: 20210101
